FAERS Safety Report 9512050 (Version 3)
Quarter: 2013Q4

REPORT INFORMATION
  Report Type: Spontaneous
  Country: US (occurrence: US)
  Receive Date: 20130910
  Receipt Date: 20131008
  Transmission Date: 20140711
  Serious: No
  Sender: FDA-Public Use
  Company Number: US-009507513-1309USA004070

PATIENT
  Age: 42 Year
  Sex: Female
  Weight: 108.84 kg

DRUGS (4)
  1. CLARITIN [Suspect]
     Indication: LACRIMATION INCREASED
     Dosage: 10 MG, QD
     Route: 048
     Dates: start: 20130824, end: 20130826
  2. CLARITIN [Suspect]
     Indication: EYE PRURITUS
  3. CLARITIN [Suspect]
     Indication: RHINORRHOEA
  4. CLARITIN [Suspect]
     Indication: UPPER-AIRWAY COUGH SYNDROME

REACTIONS (1)
  - Drug ineffective [Unknown]
